FAERS Safety Report 8464533-3 (Version None)
Quarter: 2012Q2

REPORT INFORMATION
  Report Type: 
  Country: None (occurrence: None)
  Receive Date: 20120620
  Receipt Date: 20120620
  Transmission Date: 20120825
  Serious: No
  Sender: FDA-Public Use
  Company Number: None

PATIENT
  Age: 28 Year
  Sex: Male
  Weight: 96.6162 kg

DRUGS (1)
  1. WELLBUTRIN XL [Suspect]
     Indication: DEPRESSION
     Dosage: ONE TAB PO DAILY PO
     Route: 048
     Dates: start: 20120507, end: 20120521

REACTIONS (2)
  - DRUG INEFFECTIVE [None]
  - AGITATION [None]
